FAERS Safety Report 15136629 (Version 1)
Quarter: 2018Q3

REPORT INFORMATION
  Report Type: Other
  Country: US (occurrence: US)
  Receive Date: 20180712
  Receipt Date: 20180712
  Transmission Date: 20181010
  Serious: Yes (Other)
  Sender: FDA-Public Use
  Company Number: US-MARY KAY INC.-2051909

PATIENT
  Age: 68 Year
  Sex: Female

DRUGS (1)
  1. MARY KAY TIMEWISE AGE MINIMIZE 3D DAY CRM SPF30 BS SUNSCREEN (NORMAL/DRY SKIN) [Suspect]
     Active Substance: AVOBENZONE\HOMOSALATE\OCTISALATE\OCTOCRYLENE\OXYBENZONE
     Indication: PROPHYLAXIS AGAINST SOLAR RADIATION
     Route: 061
     Dates: start: 20180606, end: 20180606

REACTIONS (3)
  - Asthma [Recovered/Resolved]
  - Cough [None]
  - Asthma [None]

NARRATIVE: CASE EVENT DATE: 20180606
